FAERS Safety Report 9371911 (Version 1)
Quarter: 2013Q2

REPORT INFORMATION
  Report Type: Spontaneous
  Country: US (occurrence: US)
  Receive Date: 20130627
  Receipt Date: 20130627
  Transmission Date: 20140414
  Serious: No
  Sender: FDA-Public Use
  Company Number: US-PFIZER INC-2013189848

PATIENT
  Age: 63 Year
  Sex: Female
  Weight: 74.83 kg

DRUGS (4)
  1. DILANTIN [Suspect]
     Indication: CONVULSION
     Dosage: 300 MG DAILY
     Dates: start: 2009
  2. DILANTIN [Suspect]
     Indication: CONVULSION
     Dosage: 75 MG DAILY
  3. SYNTHROID [Concomitant]
     Indication: HYPOTHYROIDISM
     Dosage: UNK
  4. ASPIRIN [Concomitant]
     Indication: CHEST DISCOMFORT
     Dosage: 81 MG, AS NEEDED

REACTIONS (6)
  - Contusion [Unknown]
  - Halo vision [Unknown]
  - Drug ineffective [Unknown]
  - Blood cholesterol increased [Unknown]
  - Dizziness [Unknown]
  - Balance disorder [Unknown]
